FAERS Safety Report 22932309 (Version 4)
Quarter: 2024Q2

REPORT INFORMATION
  Report Type: Report from Study
  Country: CA (occurrence: CA)
  Receive Date: 20230912
  Receipt Date: 20240409
  Transmission Date: 20240716
  Serious: Yes (Death, Hospitalization, Other)
  Sender: FDA-Public Use
  Company Number: CA-JNJFOC-20230910467

PATIENT
  Age: 71 Year
  Sex: Male

DRUGS (4)
  1. STELARA [Suspect]
     Active Substance: USTEKINUMAB
     Indication: Psoriasis
     Dosage: PATIENT TOOK INJECTION ON 04-SEP-2023
     Route: 058
     Dates: start: 201310
  2. STELARA [Suspect]
     Active Substance: USTEKINUMAB
     Route: 058
  3. STELARA [Suspect]
     Active Substance: USTEKINUMAB
     Route: 058
  4. ENSTILAR [Concomitant]
     Active Substance: BETAMETHASONE DIPROPIONATE\CALCIPOTRIENE HYDRATE
     Indication: Product used for unknown indication
     Dosage: RELEASED ON LAST REFILL OF ENSTILAR
     Route: 065

REACTIONS (6)
  - Death [Fatal]
  - Dyspnoea [Unknown]
  - Implantable defibrillator insertion [Unknown]
  - Near death experience [Unknown]
  - Haematological infection [Recovering/Resolving]
  - Skin plaque [Unknown]

NARRATIVE: CASE EVENT DATE: 20230101
